FAERS Safety Report 15803950 (Version 1)
Quarter: 2019Q1

REPORT INFORMATION
  Report Type: Spontaneous
  Country: US (occurrence: US)
  Receive Date: 20190109
  Receipt Date: 20190109
  Transmission Date: 20190417
  Serious: Yes (Other)
  Sender: FDA-Public Use
  Company Number: None

PATIENT
  Age: 37 Year
  Sex: Male
  Weight: 85.6 kg

DRUGS (1)
  1. YESCARTA [Suspect]
     Active Substance: AXICABTAGENE CILOLEUCEL
     Indication: LYMPHOMA
     Dosage: ?          OTHER FREQUENCY:1;?
     Route: 041
     Dates: start: 20181122, end: 20181122

REACTIONS (3)
  - Hypotension [None]
  - Neurotoxicity [None]
  - Cytokine release syndrome [None]

NARRATIVE: CASE EVENT DATE: 20181122
